FAERS Safety Report 5737273-9 (Version None)
Quarter: 2008Q2

REPORT INFORMATION
  Report Type: 
  Country: None (occurrence: None)
  Receive Date: 20080513
  Receipt Date: 20080513
  Transmission Date: 20081010
  Serious: Yes (Hospitalization, Other)
  Sender: FDA-Public Use
  Company Number: None

PATIENT
  Sex: Male
  Weight: 81.6475 kg

DRUGS (2)
  1. LEVAQUIN [Suspect]
     Indication: UPPER RESPIRATORY TRACT INFECTION
     Dosage: 9 DAYS ONCE DAILY PO
     Route: 048
     Dates: start: 20080318, end: 20080327
  2. METHYLPREDNISOLONE 4MG TAB [Suspect]
     Dosage: PO
     Route: 048
     Dates: start: 20080318, end: 20080323

REACTIONS (7)
  - ANGIOPATHY [None]
  - GAIT DISTURBANCE [None]
  - MUSCLE RUPTURE [None]
  - MUSCLE TIGHTNESS [None]
  - PAIN [None]
  - RESPIRATORY DISORDER [None]
  - TENDONITIS [None]
